FAERS Safety Report 25153327 (Version 1)
Quarter: 2025Q2

REPORT INFORMATION
  Report Type: Spontaneous
  Country: DE (occurrence: DE)
  Receive Date: 20250403
  Receipt Date: 20250403
  Transmission Date: 20250716
  Serious: Yes (Other)
  Sender: TEVA
  Company Number: DE-DCGMA-25204738

PATIENT
  Age: 55 Year
  Sex: Male
  Weight: 100 kg

DRUGS (10)
  1. CITALOPRAM [Suspect]
     Active Substance: CITALOPRAM
     Indication: Depression
     Route: 065
     Dates: end: 20250205
  2. ERYTHROMYCIN [Concomitant]
     Active Substance: ERYTHROMYCIN
     Indication: Product used for unknown indication
     Dosage: 250 MG 1-1-1-1
     Route: 042
  3. TINZAPARIN [Concomitant]
     Active Substance: TINZAPARIN
     Indication: Thrombosis prophylaxis
     Route: 058
  4. NALOXEGOL [Concomitant]
     Active Substance: NALOXEGOL
     Indication: Constipation
     Route: 065
  5. LINEZOLID [Suspect]
     Active Substance: LINEZOLID
     Indication: Pneumonia
     Dosage: 600 MG 1-0-1
     Route: 042
     Dates: start: 20250130, end: 20250205
  6. FENTANYL [Concomitant]
     Active Substance: FENTANYL
     Indication: Pain
     Route: 058
     Dates: start: 20250204, end: 20250204
  7. DOXEPIN [Suspect]
     Active Substance: DOXEPIN
     Indication: Pain
     Route: 065
     Dates: end: 20250205
  8. PANTOPRAZOLE SODIUM [Concomitant]
     Active Substance: PANTOPRAZOLE SODIUM
     Indication: Product used for unknown indication
     Route: 042
  9. PIPERACILLIN AND TAZOBACTAM [Concomitant]
     Active Substance: PIPERACILLIN SODIUM\TAZOBACTAM SODIUM
     Indication: Pneumonia
     Dosage: 4.5 G 1-1-1
     Route: 042
  10. LEVOTHYROXINE SODIUM [Concomitant]
     Active Substance: LEVOTHYROXINE SODIUM
     Indication: Hypothyroidism
     Route: 042

REACTIONS (5)
  - Serotonin syndrome [Unknown]
  - Agitation [Unknown]
  - Pyrexia [Unknown]
  - Blood pressure increased [Unknown]
  - Clonus [Unknown]

NARRATIVE: CASE EVENT DATE: 20250123
